FAERS Safety Report 11058164 (Version 2)
Quarter: 2015Q2

REPORT INFORMATION
  Report Type: Spontaneous
  Country: US (occurrence: None)
  Receive Date: 20150421
  Receipt Date: 20150519
  Transmission Date: 20150821
  Serious: Yes (Other)
  Sender: FDA-Public Use
  Company Number: 2015NUEUSA00482

PATIENT
  Age: 41 Year
  Sex: Female

DRUGS (8)
  1. NUEDEXTA [Suspect]
     Active Substance: DEXTROMETHORPHAN HYDROBROMIDE\QUINIDINE SULFATE
     Indication: DEPRESSION
     Dosage: 1 CAP, QD
     Dates: start: 20141016, end: 20141022
  2. RITALIN (METHYLPHENIDATE HYDROCHLORIDE) [Concomitant]
     Active Substance: METHYLPHENIDATE HYDROCHLORIDE
  3. ESTRADIOL. [Concomitant]
     Active Substance: ESTRADIOL
  4. NUEDEXTA [Suspect]
     Active Substance: DEXTROMETHORPHAN HYDROBROMIDE\QUINIDINE SULFATE
     Indication: CRANIOCEREBRAL INJURY
     Dosage: 1 CAP, QD
     Dates: start: 20141016, end: 20141022
  5. LICO3 (LITHIUM CARBONATE) [Concomitant]
  6. SAPHRIS (ASENAPINE MALEATE) [Concomitant]
  7. PROZAC [Suspect]
     Active Substance: FLUOXETINE HYDROCHLORIDE
     Indication: PRODUCT USED FOR UNKNOWN INDICATION
     Dates: end: 20141010
  8. NYSTATIN. [Concomitant]
     Active Substance: NYSTATIN

REACTIONS (5)
  - Suicidal ideation [None]
  - Off label use [None]
  - Craniocerebral injury [None]
  - Feeling abnormal [None]
  - Condition aggravated [None]

NARRATIVE: CASE EVENT DATE: 20141016
